FAERS Safety Report 26190491 (Version 1)
Quarter: 2025Q4

REPORT INFORMATION
  Report Type: Spontaneous
  Country: CA (occurrence: CA)
  Receive Date: 20251223
  Receipt Date: 20251223
  Transmission Date: 20260117
  Serious: Yes (Other)
  Sender: ROCHE
  Company Number: CA-ROCHE-10000466128

PATIENT
  Age: 46 Year
  Sex: Female

DRUGS (3)
  1. RITUXIMAB [Suspect]
     Active Substance: RITUXIMAB
     Indication: Multiple sclerosis relapse
     Route: 042
  2. DIPHENHYDRAMINE HYDROCHLORIDE [Concomitant]
     Active Substance: DIPHENHYDRAMINE HYDROCHLORIDE
     Indication: Product used for unknown indication
  3. HYDROCORTISONE [Concomitant]
     Active Substance: HYDROCORTISONE
     Indication: Product used for unknown indication

REACTIONS (15)
  - Blood creatinine abnormal [Unknown]
  - Bradycardia [Unknown]
  - Bronchitis [Unknown]
  - Chest pain [Unknown]
  - Chills [Unknown]
  - Cough [Unknown]
  - Dizziness [Unknown]
  - Feeling cold [Unknown]
  - Glomerular filtration rate abnormal [Unknown]
  - Nausea [Unknown]
  - Off label use [Unknown]
  - Presyncope [Unknown]
  - Renal disorder [Unknown]
  - Throat clearing [Unknown]
  - Wheezing [Unknown]
